FAERS Safety Report 7764409-0 (Version None)
Quarter: 2011Q3

REPORT INFORMATION
  Report Type: 
  Country: None (occurrence: None)
  Receive Date: 20110921
  Receipt Date: 20110913
  Transmission Date: 20111222
  Serious: Yes (Hospitalization)
  Sender: FDA-Public Use
  Company Number: US-B.I. PHARMACEUTICALS,INC./RIDGEFIELD-2011-BP-18138BP

PATIENT
  Age: 84 Year
  Sex: Female
  Weight: 56 kg

DRUGS (8)
  1. METOPROLOL TARTRATE [Concomitant]
  2. ATORVASTATIN [Concomitant]
  3. REVLIMID [Concomitant]
  4. FOLIC ACID [Concomitant]
  5. CALCIUM CARBONATE [Concomitant]
  6. VITAMIN D [Concomitant]
  7. PRADAXA [Suspect]
     Indication: ATRIAL FIBRILLATION
     Dosage: 300 MG
     Route: 048
     Dates: start: 20110627, end: 20110711
  8. PERIDEX [Concomitant]

REACTIONS (3)
  - RENAL FAILURE [None]
  - POST PROCEDURAL HAEMORRHAGE [None]
  - SPLENIC HAEMATOMA [None]
